FAERS Safety Report 10502855 (Version 2)
Quarter: 2014Q4

REPORT INFORMATION
  Report Type: Spontaneous
  Country: FR (occurrence: None)
  Receive Date: 20141003
  Receipt Date: 20141006
  Transmission Date: 20150528
  Serious: Yes (Disabling, Other)
  Sender: FDA-Public Use
  Company Number: 2014-20403

PATIENT
  Age: 83 Year
  Sex: Male

DRUGS (2)
  1. EYLEA [Suspect]
     Active Substance: AFLIBERCEPT
     Indication: AGE-RELATED MACULAR DEGENERATION
     Route: 031
  2. AZITHROMYCINE (AZITHROMYCIN) [Concomitant]

REACTIONS (4)
  - Neoplasm malignant [None]
  - Cranial nerve injury [None]
  - Extraocular muscle paresis [None]
  - Diplopia [None]
